FAERS Safety Report 16100201 (Version 3)
Quarter: 2019Q4

REPORT INFORMATION
  Report Type: Report from Study
  Country: CA (occurrence: CA)
  Receive Date: 20190321
  Receipt Date: 20191217
  Transmission Date: 20200122
  Serious: Yes (Other)
  Sender: FDA-Public Use
  Company Number: CA-TEVA-2019-CA-1024037

PATIENT
  Sex: Female

DRUGS (5)
  1. COPAXONE [Suspect]
     Active Substance: GLATIRAMER ACETATE
     Indication: MULTIPLE SCLEROSIS
     Route: 065
     Dates: start: 20171219, end: 201810
  2. MULTIVITAMIN [Suspect]
     Active Substance: VITAMINS
     Indication: PRODUCT USED FOR UNKNOWN INDICATION
     Route: 065
  3. PROBIOTIC [Suspect]
     Active Substance: PROBIOTICS NOS
     Indication: PRODUCT USED FOR UNKNOWN INDICATION
     Route: 065
  4. VITAMIN D [Suspect]
     Active Substance: VITAMIN D NOS
     Indication: PRODUCT USED FOR UNKNOWN INDICATION
     Route: 065
  5. PRENATAL VITAMINS [Suspect]
     Active Substance: VITAMINS
     Indication: PRODUCT USED FOR UNKNOWN INDICATION
     Route: 065

REACTIONS (8)
  - Flushing [Unknown]
  - Cardiac flutter [Not Recovered/Not Resolved]
  - Fear of injection [Unknown]
  - Anxiety [Unknown]
  - Myocardial infarction [Unknown]
  - Panic attack [Unknown]
  - Nervousness [Unknown]
  - Immediate post-injection reaction [Unknown]
